FAERS Safety Report 5288223-3 (Version None)
Quarter: 2007Q2

REPORT INFORMATION
  Report Type: 
  Country: None (occurrence: None)
  Receive Date: 20070405
  Receipt Date: 20070327
  Transmission Date: 20071010
  Serious: Yes (Life-Threatening, Hospitalization)
  Sender: FDA-Public Use
  Company Number: AU-JNJFOC-20070203416

PATIENT
  Sex: Female

DRUGS (2)
  1. RISPERDAL CONSTA [Suspect]
  2. RISPERDAL CONSTA [Suspect]
     Indication: SCHIZOPHRENIA

REACTIONS (1)
  - ACUTE MYOCARDIAL INFARCTION [None]
